FAERS Safety Report 6594152-5 (Version None)
Quarter: 2010Q1

REPORT INFORMATION
  Report Type: 
  Country: None (occurrence: None)
  Receive Date: 20100222
  Receipt Date: 20100211
  Transmission Date: 20100710
  Serious: Yes (Hospitalization, Other)
  Sender: FDA-Public Use
  Company Number: US-JNJFOC-20090506192

PATIENT
  Sex: Female
  Weight: 84.37 kg

DRUGS (12)
  1. REMICADE [Suspect]
     Indication: CROHN'S DISEASE
     Dosage: RESTARTED
     Route: 042
  2. REMICADE [Suspect]
     Route: 042
  3. REMICADE [Suspect]
     Route: 042
  4. REMICADE [Suspect]
     Indication: COLITIS ULCERATIVE
     Dosage: RESTARTED
     Route: 042
  5. REMICADE [Suspect]
     Route: 042
  6. REMICADE [Suspect]
     Route: 042
  7. METHOTREXATE [Concomitant]
     Indication: ARTHROPATHY
  8. FOLIC ACID [Concomitant]
     Indication: NUTRITIONAL SUPPORT
  9. HYDROCHLOROTHIAZIDE [Concomitant]
     Indication: BLOOD PRESSURE
     Dosage: DURATION: ^MAYBE 3 YEARS^
  10. ZOFRAN [Concomitant]
     Indication: GASTRIC DISORDER
     Dosage: DURATION: 6 MONTHS
  11. NEXIUM [Concomitant]
     Indication: GASTROOESOPHAGEAL REFLUX DISEASE
  12. DONNATAL [Concomitant]
     Indication: GASTRIC DISORDER
     Dosage: DURATION: 14-15 YEARS

REACTIONS (6)
  - ADVERSE EVENT [None]
  - CROHN'S DISEASE [None]
  - HOSPITALISATION [None]
  - INTERVERTEBRAL DISC DISORDER [None]
  - KNEE OPERATION [None]
  - OESOPHAGEAL OBSTRUCTION [None]
